FAERS Safety Report 8231237-1 (Version None)
Quarter: 2012Q1

REPORT INFORMATION
  Report Type: 
  Country: None (occurrence: None)
  Receive Date: 20120320
  Receipt Date: 20120308
  Transmission Date: 20120608
  Serious: Yes (Death, Life-Threatening, Other)
  Sender: FDA-Public Use
  Company Number: 2012SP012829

PATIENT
  Age: 74 Year
  Sex: Female
  Weight: 44.5 kg

DRUGS (16)
  1. TEMODAL [Suspect]
     Indication: GLIOBLASTOMA MULTIFORME
     Dosage: 100 MG;QD;INDRP ; 10 MG;QD;INDRP
     Route: 041
     Dates: start: 20110525, end: 20110529
  2. TEMODAL [Suspect]
     Indication: GLIOBLASTOMA MULTIFORME
     Dosage: 100 MG;QD;INDRP ; 10 MG;QD;INDRP
     Route: 041
     Dates: start: 20110221, end: 20110403
  3. FLOMOX (CEFCAPENE PIVOXIL HYDROCHLORIDE HYDRATE) [Concomitant]
  4. FAMOTIDINE [Concomitant]
  5. MEIACTMS [Concomitant]
  6. BFLUID (MIXED AMINO ACID/CARBOHYDRATE/ELECTROLYTE/VITAMIN COMBINED DRU [Concomitant]
  7. NORVASC [Concomitant]
  8. SOLACET F (ACETATEED RINGER;S SOLUTION) [Concomitant]
  9. RAMELTEON [Concomitant]
  10. FAMOTIDINE [Concomitant]
  11. LOSARTAN POTASSIUM AND HYDROCHLOROTHIAZIDE [Concomitant]
  12. GLYCEOL (CONCENTRATED GLYCEIRN, FRUCTOSE) [Concomitant]
  13. BETAMETHASONE [Suspect]
     Indication: BRAIN NEOPLASM
     Dosage: PO
     Route: 048
     Dates: start: 20110215, end: 20110303
  14. SULFAMETHOXAZOLE AND TRIMETHOPRIM [Concomitant]
  15. SODIUM CHLORIDE [Concomitant]
  16. SEROTONE [Concomitant]

REACTIONS (5)
  - GLUCOSE URINE PRESENT [None]
  - BRAIN NEOPLASM [None]
  - NEOPLASM PROGRESSION [None]
  - DIABETES MELLITUS [None]
  - ASPARTATE AMINOTRANSFERASE INCREASED [None]
